FAERS Safety Report 5067245-1 (Version None)
Quarter: 2006Q3

REPORT INFORMATION
  Report Type: 
  Country: None (occurrence: None)
  Receive Date: 20060727
  Receipt Date: 20060717
  Transmission Date: 20061208
  Serious: Yes (Life-Threatening, Other)
  Sender: FDA-Public Use
  Company Number: 2006-DE-03687GD

PATIENT
  Age: 18 Year
  Sex: Female

DRUGS (6)
  1. MORPHINE [Suspect]
     Indication: CANCER PAIN
     Dosage: SEE IMAGE
  2. HALOPERIDOL [Suspect]
     Indication: ACUTE PSYCHOSIS
     Dosage: 4 MG (TWICE DAILY), IM
     Route: 030
  3. HALOPERIDOL [Suspect]
     Indication: VOMITING
     Dosage: 4 MG (TWICE DAILY), IM
     Route: 030
  4. NALOXONE [Suspect]
     Indication: THERAPEUTIC AGENT TOXICITY
     Dosage: 0.4 MG (3 DOSES (0.2 MG, 0.1 MG, 0.1 MG), IV
     Route: 042
  5. LIDOCAINE [Concomitant]
  6. EPINEPHRINE [Concomitant]

REACTIONS (12)
  - ACUTE PSYCHOSIS [None]
  - DRUG TOXICITY [None]
  - DYSPNOEA [None]
  - EXTRAPYRAMIDAL DISORDER [None]
  - LOSS OF CONSCIOUSNESS [None]
  - MIOSIS [None]
  - OCULOGYRATION [None]
  - OVERDOSE [None]
  - RESPIRATORY DEPRESSION [None]
  - RESTLESSNESS [None]
  - TORTICOLLIS [None]
  - VOMITING [None]
